FAERS Safety Report 6776440-2 (Version None)
Quarter: 2010Q2

REPORT INFORMATION
  Report Type: 
  Country: None (occurrence: None)
  Receive Date: 20100615
  Receipt Date: 20100607
  Transmission Date: 20101027
  Serious: Yes (Life-Threatening)
  Sender: FDA-Public Use
  Company Number: 2010EU002262

PATIENT
  Age: 76 Year
  Sex: Female
  Weight: 85 kg

DRUGS (4)
  1. PROTOPIC [Suspect]
     Indication: DERMATITIS ATOPIC
     Dosage: 1 DF, CUTANEOUS
     Route: 003
     Dates: start: 20090601
  2. PREDNISOLONE [Concomitant]
  3. CUTIVATE (FLUTICASONE PROPIONATE) [Concomitant]
  4. NEORAL [Concomitant]

REACTIONS (1)
  - NODULE [None]
